FAERS Safety Report 14714555 (Version 1)
Quarter: 2018Q1

REPORT INFORMATION
  Report Type: Spontaneous
  Country: US (occurrence: US)
  Receive Date: 20180330
  Receipt Date: 20180330
  Transmission Date: 20180509
  Serious: Yes (Disabling)
  Sender: FDA-Public Use
  Company Number: None

PATIENT
  Age: 52 Year
  Sex: Male
  Weight: 101.25 kg

DRUGS (3)
  1. NUCALA [Suspect]
     Active Substance: MEPOLIZUMAB
     Indication: ASTHMA
     Dosage: ?          QUANTITY:1 INJECTION(S);OTHER FREQUENCY:EVERY 28 DAYS;?
     Route: 058
     Dates: start: 20171120, end: 20180314
  2. DULARA [Concomitant]
  3. LIPITOR [Concomitant]
     Active Substance: ATORVASTATIN CALCIUM

REACTIONS (2)
  - Drug ineffective [None]
  - Hypersensitivity [None]

NARRATIVE: CASE EVENT DATE: 20180314
